FAERS Safety Report 18841178 (Version 5)
Quarter: 2021Q4

REPORT INFORMATION
  Report Type: Report from Study
  Country: US (occurrence: US)
  Receive Date: 20210203
  Receipt Date: 20211118
  Transmission Date: 20220303
  Serious: Yes (Hospitalization)
  Sender: FDA-Public Use
  Company Number: US-TAKEDA-2021TUS005686

PATIENT
  Age: 50 Year
  Sex: Female
  Weight: 98 kg

DRUGS (13)
  1. ICATIBANT [Suspect]
     Active Substance: ICATIBANT ACETATE
     Indication: Immune system disorder
     Dosage: 30 MILLIGRAM
     Route: 058
     Dates: start: 201701
  2. ICATIBANT [Suspect]
     Active Substance: ICATIBANT ACETATE
     Indication: Immune system disorder
     Dosage: 30 MILLIGRAM
     Route: 058
     Dates: start: 201701
  3. ICATIBANT [Suspect]
     Active Substance: ICATIBANT ACETATE
     Indication: Hereditary angioedema with normal C1 esterase inhibitor
     Dosage: 30 MILLIGRAM
     Route: 058
     Dates: start: 20191219
  4. ICATIBANT [Suspect]
     Active Substance: ICATIBANT ACETATE
     Indication: Hereditary angioedema with normal C1 esterase inhibitor
     Dosage: 30 MILLIGRAM
     Route: 058
     Dates: start: 20191219
  5. DEPAKOTE [Concomitant]
     Active Substance: DIVALPROEX SODIUM
     Dosage: UNK
     Route: 065
  6. METOPROLOL FUMARATE [Concomitant]
     Active Substance: METOPROLOL FUMARATE
     Dosage: UNK
     Route: 065
  7. LEXAPRO [Concomitant]
     Active Substance: ESCITALOPRAM OXALATE
     Dosage: UNK
     Route: 065
  8. LOSARTAN [Concomitant]
     Active Substance: LOSARTAN
     Dosage: UNK
     Route: 065
  9. CLONIDINE [Concomitant]
     Active Substance: CLONIDINE
     Dosage: UNK
     Route: 065
  10. POTASSIUM [Concomitant]
     Active Substance: POTASSIUM
     Dosage: UNK
     Route: 065
  11. FOLIC ACID [Concomitant]
     Active Substance: FOLIC ACID
     Dosage: UNK
     Route: 065
  12. IRON [Concomitant]
     Active Substance: IRON
     Dosage: UNK
     Route: 065
  13. TORSEMIDE [Concomitant]
     Active Substance: TORSEMIDE
     Dosage: UNK
     Route: 065

REACTIONS (4)
  - Blood pressure increased [Unknown]
  - Chest pain [Unknown]
  - COVID-19 [Unknown]
  - Inappropriate schedule of product administration [Unknown]

NARRATIVE: CASE EVENT DATE: 20201201
